FAERS Safety Report 5406953-7 (Version None)
Quarter: 2007Q3

REPORT INFORMATION
  Report Type: 
  Country: None (occurrence: None)
  Receive Date: 20070807
  Receipt Date: 20070726
  Transmission Date: 20080115
  Serious: Yes (Hospitalization)
  Sender: FDA-Public Use
  Company Number: FR-BAYER-200710461BFR

PATIENT
  Age: 75 Year
  Sex: Female

DRUGS (10)
  1. CIPROFLOXACIN HCL [Suspect]
     Indication: ESCHERICHIA URINARY TRACT INFECTION
     Dates: start: 20070505, end: 20070512
  2. PREVISCAN [Interacting]
     Indication: PHLEBITIS DEEP
     Route: 048
     Dates: end: 20070514
  3. TRIFLUCAN [Concomitant]
     Indication: UNEVALUABLE EVENT
     Dates: end: 20070512
  4. DEBRIDAT [Concomitant]
     Indication: UNEVALUABLE EVENT
  5. KALEORID [Concomitant]
     Indication: UNEVALUABLE EVENT
  6. NOROXIN [Concomitant]
     Indication: ESCHERICHIA URINARY TRACT INFECTION
     Dates: start: 20070505, end: 20070512
  7. PAROXETINE HCL [Concomitant]
     Indication: UNEVALUABLE EVENT
     Dates: start: 20070503
  8. EQUANIL [Concomitant]
     Indication: UNEVALUABLE EVENT
     Dates: start: 20070503
  9. HALDOL [Concomitant]
     Indication: UNEVALUABLE EVENT
     Dates: start: 20070503
  10. SPECIAFOLDINE [Concomitant]
     Indication: UNEVALUABLE EVENT
     Dates: start: 20070503

REACTIONS (2)
  - INTERNATIONAL NORMALISED RATIO INCREASED [None]
  - SUBDURAL HAEMATOMA [None]
